FAERS Safety Report 8421788-9 (Version None)
Quarter: 2012Q2

REPORT INFORMATION
  Report Type: 
  Country: None (occurrence: None)
  Receive Date: 20120608
  Receipt Date: 20120531
  Transmission Date: 20120825
  Serious: Yes (Other)
  Sender: FDA-Public Use
  Company Number: DE-UCBSA-039047

PATIENT
  Sex: Female

DRUGS (21)
  1. MAGNESIUM [Concomitant]
     Indication: MUSCLE SPASMS
     Dates: start: 20110222
  2. PREDNISOLONE [Concomitant]
     Dates: start: 20110216, end: 20110218
  3. PREDNISOLONE [Concomitant]
     Dates: start: 20110226, end: 20110314
  4. PREDNISOLONE [Concomitant]
     Dates: start: 20110418, end: 20110516
  5. CHOLECALCIFEROL [Concomitant]
     Dates: start: 20110224
  6. ARAVA [Concomitant]
     Indication: RHEUMATOID ARTHRITIS
     Dates: start: 20091201, end: 20111026
  7. DICLOFENAC SODIUM [Concomitant]
     Indication: PAIN
     Dosage: 75 MG : EVERY DAY AFTERNOON
     Dates: start: 20110215, end: 20110225
  8. PREDNISOLONE [Concomitant]
     Dates: start: 20110315, end: 20110327
  9. PREDNISOLONE [Concomitant]
     Dates: start: 20110405, end: 20110417
  10. PNEUMOCOCCAL VACCINE [Concomitant]
     Dates: start: 20110223
  11. IRBESARTAN [Concomitant]
     Indication: HYPERTENSION
     Dates: start: 20110216, end: 20110224
  12. IRBESARTAN [Concomitant]
     Dates: start: 20110225
  13. PREDNISOLONE [Concomitant]
     Dates: start: 20110215, end: 20110215
  14. CIMZIA [Suspect]
     Indication: RHEUMATOID ARTHRITIS
     Dosage: 200 MG
     Route: 058
     Dates: start: 20110224, end: 20120112
  15. ARAVA [Concomitant]
     Dates: start: 20111026
  16. PANTOPRAZOLE [Concomitant]
     Indication: PROPHYLAXIS
     Dates: start: 20110216, end: 20110228
  17. DICLOFENAC SODIUM [Concomitant]
     Dates: start: 20110401
  18. PREDNISOLONE [Concomitant]
     Indication: RHEUMATOID ARTHRITIS
     Dates: start: 20090514, end: 20110201
  19. PREDNISOLONE [Concomitant]
     Dates: start: 20110219, end: 20110225
  20. PREDNISOLONE [Concomitant]
     Dates: start: 20110328, end: 20110404
  21. PREDNISOLONE [Concomitant]
     Dates: start: 20110517

REACTIONS (1)
  - HYPERTENSIVE CRISIS [None]
